FAERS Safety Report 25094507 (Version 1)
Quarter: 2025Q1

REPORT INFORMATION
  Report Type: Report from Study
  Country: FR (occurrence: FR)
  Receive Date: 20250319
  Receipt Date: 20250319
  Transmission Date: 20250409
  Serious: Yes (Hospitalization)
  Sender: EISAI
  Company Number: FR-Eisai Medical Research-EC-2023-142420

PATIENT
  Age: 57 Year
  Sex: Male

DRUGS (4)
  1. LENVATINIB [Suspect]
     Active Substance: LENVATINIB
     Indication: Thymic carcinoma
     Dates: end: 20230607
  2. PEMBROLIZUMAB [Suspect]
     Active Substance: PEMBROLIZUMAB
     Indication: Thymic carcinoma
  3. AMLODIPINE BESYLATE [Concomitant]
     Active Substance: AMLODIPINE BESYLATE
     Dates: start: 20220721
  4. LEVOTHYROXINE [Concomitant]
     Active Substance: LEVOTHYROXINE
     Dates: start: 20220928

REACTIONS (1)
  - Lung abscess [Recovered/Resolved]

NARRATIVE: CASE EVENT DATE: 20230607
